FAERS Safety Report 18746073 (Version 1)
Quarter: 2021Q1

REPORT INFORMATION
  Report Type: Spontaneous
  Country: NZ (occurrence: NZ)
  Receive Date: 20210115
  Receipt Date: 20210115
  Transmission Date: 20210419
  Serious: Yes (Hospitalization)
  Sender: FDA-Public Use
  Company Number: NZ-CELLTRION-2021-NZ-000002

PATIENT
  Age: 44 Year
  Sex: Male

DRUGS (6)
  1. LAMOTRIGINE (NON?SPECIFIC) [Suspect]
     Active Substance: LAMOTRIGINE
     Indication: NEUROLOGICAL SYMPTOM
  2. CITALOPRAM [Suspect]
     Active Substance: CITALOPRAM HYDROBROMIDE
     Indication: NEUROLOGICAL SYMPTOM
  3. SODIUM VALPROATE [Suspect]
     Active Substance: VALPROATE SODIUM
     Indication: NEUROLOGICAL SYMPTOM
  4. CARBAMAZEPINE. [Suspect]
     Active Substance: CARBAMAZEPINE
     Indication: NEUROLOGICAL SYMPTOM
  5. LEVETIRACETAM. [Suspect]
     Active Substance: LEVETIRACETAM
     Indication: NEUROLOGICAL SYMPTOM
  6. MELATONIN [Suspect]
     Active Substance: MELATONIN
     Indication: INSOMNIA
     Dosage: 3 MG DAILY

REACTIONS (1)
  - Subacute cutaneous lupus erythematosus [Not Recovered/Not Resolved]
